FAERS Safety Report 14995366 (Version 1)
Quarter: 2018Q2

REPORT INFORMATION
  Report Type: Spontaneous
  Country: FR (occurrence: FR)
  Receive Date: 20180611
  Receipt Date: 20180611
  Transmission Date: 20180711
  Serious: Yes (Death)
  Sender: FDA-Public Use
  Company Number: FR-CELGENEUS-FRA-20180510905

PATIENT
  Age: 66 Year

DRUGS (1)
  1. AG-221 [Suspect]
     Active Substance: ENASIDENIB
     Indication: ACUTE MYELOID LEUKAEMIA
     Route: 048

REACTIONS (3)
  - Leukostasis syndrome [Fatal]
  - Treatment failure [Unknown]
  - Acute myeloid leukaemia [Fatal]

NARRATIVE: CASE EVENT DATE: 201805
